FAERS Safety Report 19165170 (Version 2)
Quarter: 2021Q2

REPORT INFORMATION
  Report Type: Spontaneous
  Country: US (occurrence: US)
  Receive Date: 20210421
  Receipt Date: 20210505
  Transmission Date: 20210717
  Serious: Yes (Other)
  Sender: FDA-Public Use
  Company Number: US-ALLERGAN-2111516US

PATIENT
  Sex: Female

DRUGS (22)
  1. NAMENDA [Suspect]
     Active Substance: MEMANTINE HYDROCHLORIDE
     Indication: HALLUCINATION, VISUAL
     Dosage: 5 MG, QHS
     Route: 048
     Dates: start: 20181014, end: 20181101
  2. ALLOPURINOL. [Concomitant]
     Active Substance: ALLOPURINOL
     Dosage: 300 MG, QD
  3. ARTIFICIAL TEARS [Concomitant]
     Active Substance: GLYCERIN\HYPROMELLOSES\POLYETHYLENE GLYCOL 400
     Dosage: AT BEDTIME
  4. TRIAMCINOLONE [Concomitant]
     Active Substance: TRIAMCINOLONE
     Dosage: AS NEEDED
  5. TUMS [Concomitant]
     Active Substance: CALCIUM CARBONATE
     Dosage: AS NEEDED
  6. TEMAZEPAM. [Concomitant]
     Active Substance: TEMAZEPAM
  7. PREVACID [Concomitant]
     Active Substance: LANSOPRAZOLE
     Dosage: 15 MG (TAKES  HALF OF A 30 MG TAB)
  8. ALBUTEROL. [Concomitant]
     Active Substance: ALBUTEROL
     Dosage: AS NEEDED (INHALER)
     Route: 055
  9. TESSALON [Concomitant]
     Active Substance: BENZONATATE
     Dosage: AS NEEDED
  10. CASTOR OIL DROPS [Concomitant]
     Dosage: AS NEEDED
  11. ISOSORBIDE. [Concomitant]
     Active Substance: ISOSORBIDE
     Dosage: 30 MG, QD
  12. UNSPECIFIED ANTIBIOTIC [Concomitant]
     Active Substance: UNSPECIFIED INGREDIENT
  13. BETAMETHASONE. [Concomitant]
     Active Substance: BETAMETHASONE
     Dosage: AS NEEDED
  14. CLARITIN [Concomitant]
     Active Substance: LORATADINE
     Dosage: DAILY AS NEEDED
  15. CEFADROXIL. [Concomitant]
     Active Substance: CEFADROXIL
     Dosage: TWICE DAILY
  16. INSULIN 70/30 [Concomitant]
     Active Substance: INSULIN HUMAN
     Dosage: TWICE DAILY
  17. CALCIUM WITH VITAMIN D [Concomitant]
     Active Substance: CALCIUM\VITAMIN D
     Dosage: TWICE DAILY
  18. PYRIDIUM [Concomitant]
     Active Substance: PHENAZOPYRIDINE
     Dosage: AS NEEDED
  19. BABY ASPIRIN [Concomitant]
     Active Substance: ASPIRIN
     Dosage: DAILY
  20. ATORVASTATIN [Concomitant]
     Active Substance: ATORVASTATIN
     Dosage: 20 MG, QD
  21. KETOCONAZOLE. [Concomitant]
     Active Substance: KETOCONAZOLE
     Dosage: TWICE WEEKLY
  22. LISINOPRIL. [Concomitant]
     Active Substance: LISINOPRIL
     Dosage: 5 MG, QD

REACTIONS (9)
  - Choking sensation [Recovered/Resolved]
  - Dyspnoea [Recovered/Resolved]
  - Pruritus [Unknown]
  - Ocular hyperaemia [Recovered/Resolved]
  - Off label use [Unknown]
  - Swelling [Recovered/Resolved]
  - Drug hypersensitivity [Recovered/Resolved]
  - Anxiety [Unknown]
  - Rash [Recovered/Resolved]

NARRATIVE: CASE EVENT DATE: 20181015
